FAERS Safety Report 24815907 (Version 1)
Quarter: 2025Q1

REPORT INFORMATION
  Report Type: Spontaneous
  Country: US (occurrence: US)
  Receive Date: 20250107
  Receipt Date: 20250107
  Transmission Date: 20250409
  Serious: Yes (Other)
  Sender: RANBAXY
  Company Number: US-SUN PHARMACEUTICAL INDUSTRIES LTD-2024R1-487833

PATIENT
  Age: 34 Year
  Sex: Male

DRUGS (5)
  1. CLOBETASOL [Suspect]
     Active Substance: CLOBETASOL
     Indication: Alopecia areata
     Route: 065
  2. MINOXIDIL [Suspect]
     Active Substance: MINOXIDIL
     Indication: Alopecia areata
     Route: 061
  3. TRIAMCINOLONE [Suspect]
     Active Substance: TRIAMCINOLONE
     Indication: Alopecia areata
     Route: 026
  4. FINASTERIDE [Suspect]
     Active Substance: FINASTERIDE
     Indication: Alopecia areata
     Route: 065
  5. RUXOLITINIB [Suspect]
     Active Substance: RUXOLITINIB
     Indication: Alopecia areata
     Route: 061

REACTIONS (1)
  - Central serous chorioretinopathy [Recovering/Resolving]
